FAERS Safety Report 9172502 (Version 1)
Quarter: 2012Q4

REPORT INFORMATION
  Report Type: 
  Country: US (occurrence: US)
  Receive Date: 20120911
  Receipt Date: 20120911
  Transmission Date: 20130627
  Serious: Yes (Hospitalization)
  Sender: FDA-Public Use
  Company Number: US-ROCHE-1086879

PATIENT
  Age: 41 None
  Sex: Female

DRUGS (3)
  1. PEGASYS [Suspect]
     Indication: HEPATITIS C
     Route: 058
     Dates: start: 20120615
  2. RIBAVIRIN [Suspect]
     Indication: HEPATITIS C
     Dosage: in divided doses
     Route: 048
     Dates: start: 20120615
  3. TELAPREVIR [Suspect]
     Indication: HEPATITIS C
     Route: 065
     Dates: start: 20120615, end: 20120907

REACTIONS (13)
  - Platelet count decreased [Unknown]
  - Red blood cell count decreased [Unknown]
  - Vaginal haemorrhage [Not Recovered/Not Resolved]
  - Asthenia [Unknown]
  - Headache [Unknown]
  - Fatigue [Unknown]
  - Contusion [Unknown]
  - Limb injury [Unknown]
  - Menstruation irregular [Unknown]
  - Menorrhagia [Unknown]
  - Dyspnoea [Unknown]
  - Diarrhoea [Unknown]
  - Pruritus [Unknown]
